FAERS Safety Report 6438084-1 (Version None)
Quarter: 2009Q4

REPORT INFORMATION
  Report Type: 
  Country: None (occurrence: None)
  Receive Date: 20091112
  Receipt Date: 20091103
  Transmission Date: 20100525
  Serious: Yes (Other)
  Sender: FDA-Public Use
  Company Number: KR-ELI_LILLY_AND_COMPANY-KR200911000753

PATIENT
  Age: 69 Year
  Sex: Male

DRUGS (3)
  1. BYETTA [Suspect]
     Indication: TYPE 2 DIABETES MELLITUS
     Dosage: 10 UG, 2/D
     Route: 058
     Dates: start: 20090729
  2. BYETTA [Suspect]
     Dosage: 10 UG, 2/D
     Route: 058
  3. ORAL ANTIDIABETICS [Concomitant]
     Route: 048

REACTIONS (1)
  - DIABETIC RETINOPATHY [None]
